FAERS Safety Report 5578761-8 (Version None)
Quarter: 2007Q4

REPORT INFORMATION
  Report Type: 
  Country: None (occurrence: None)
  Receive Date: 20071227
  Receipt Date: 20071219
  Transmission Date: 20080405
  Serious: Yes (Other)
  Sender: FDA-Public Use
  Company Number: 2007338049

PATIENT
  Age: 49 Year
  Sex: Female
  Weight: 49.9 kg

DRUGS (2)
  1. MINOXIDIL [Suspect]
     Dosage: TOPICAL
     Route: 061
     Dates: start: 20070101
  2. PROPECIA [Concomitant]

REACTIONS (2)
  - HEADACHE [None]
  - SYNCOPE [None]
